FAERS Safety Report 25260858 (Version 1)
Quarter: 2025Q2

REPORT INFORMATION
  Report Type: Report from Study
  Country: BR (occurrence: BR)
  Receive Date: 20250501
  Receipt Date: 20250501
  Transmission Date: 20250717
  Serious: Yes (Hospitalization, Other)
  Sender: NOVO NORDISK
  Company Number: BR-NOVOPROD-1411008

PATIENT
  Sex: Female
  Weight: 82 kg

DRUGS (3)
  1. RYBELSUS [Interacting]
     Active Substance: SEMAGLUTIDE
     Indication: Weight control
     Dosage: 3 MG, QD ON AN EMPTY STOMACH
     Dates: start: 2024
  2. RYBELSUS [Interacting]
     Active Substance: SEMAGLUTIDE
     Dosage: 7 MG, QD
     Dates: start: 202409
  3. NIMESULIDE [Interacting]
     Active Substance: NIMESULIDE
     Indication: Eye infection

REACTIONS (5)
  - Gastroenteritis [Recovered/Resolved]
  - Eye infection [Recovered/Resolved]
  - Drug interaction [Unknown]
  - Alopecia [Unknown]
  - Product use in unapproved indication [Recovered/Resolved]

NARRATIVE: CASE EVENT DATE: 20240901
